FAERS Safety Report 7984720-8 (Version None)
Quarter: 2011Q4

REPORT INFORMATION
  Report Type: 
  Country: None (occurrence: None)
  Receive Date: 20111216
  Receipt Date: 20111207
  Transmission Date: 20120403
  Serious: Yes (Hospitalization)
  Sender: FDA-Public Use
  Company Number: US-CELGENEUS-163-21880-11121131

PATIENT
  Sex: Female

DRUGS (11)
  1. REVLIMID [Suspect]
     Indication: MULTIPLE MYELOMA
     Dosage: 25 MILLIGRAM
     Route: 048
     Dates: start: 20080918
  2. VALTREX [Concomitant]
     Dosage: 1 GRAM
     Route: 065
     Dates: start: 20090206
  3. LOVENOX [Concomitant]
     Dosage: 80/0.8 ML
     Route: 065
     Dates: start: 20111010
  4. DEXAMETHASONE TAB [Concomitant]
     Dosage: 40 MILLIGRAM
     Route: 065
     Dates: start: 20090206
  5. DIPHEN / ATROP [Concomitant]
     Dosage: 2.5 MILLIGRAM
     Route: 065
  6. COUMADIN [Concomitant]
     Dosage: 5 MILLIGRAM
     Route: 065
     Dates: start: 20111010
  7. FLEXERIL [Concomitant]
     Dosage: 10 MILLIGRAM
     Route: 065
     Dates: start: 20090313
  8. LASIX [Concomitant]
     Dosage: 20 MILLIGRAM
     Route: 065
  9. ACETAMINOPHEN AND HYDROCODONE BITARTRATE [Concomitant]
     Dosage: 5-500 MG
     Route: 065
     Dates: start: 20090313
  10. DICYCLOMINE [Concomitant]
     Dosage: 20 MILLIGRAM
     Route: 065
     Dates: start: 20100112
  11. PROCHLORPER [Concomitant]
     Indication: NAUSEA
     Dosage: 10 MILLIGRAM
     Route: 065
     Dates: start: 20090206

REACTIONS (1)
  - CYST [None]
